APPROVED DRUG PRODUCT: E.E.S. 400
Active Ingredient: ERYTHROMYCIN ETHYLSUCCINATE
Strength: EQ 400MG BASE
Dosage Form/Route: TABLET;ORAL
Application: A061905 | Product #002 | TE Code: BX
Applicant: PHARMOBEDIENT CONSULTING LLC
Approved: Aug 12, 1982 | RLD: No | RS: Yes | Type: RX